FAERS Safety Report 4887858-7 (Version None)
Quarter: 2006Q1

REPORT INFORMATION
  Report Type: 
  Country: None (occurrence: None)
  Receive Date: 20060123
  Receipt Date: 20041006
  Transmission Date: 20060701
  Serious: Yes (Life-Threatening, Hospitalization, Disabling, Other)
  Sender: FDA-Public Use
  Company Number: US-MERCK-0410USA00949

PATIENT
  Age: 62 Year
  Sex: Male
  Weight: 80 kg

DRUGS (15)
  1. VIOXX [Suspect]
     Indication: ARTHRALGIA
     Route: 048
     Dates: start: 20010705, end: 20040930
  2. [THERAPY UNSPECIFIED] [Concomitant]
     Route: 065
  3. ZESTRIL [Concomitant]
     Route: 065
  4. XANAX [Concomitant]
     Route: 065
  5. PROCARDIA [Concomitant]
     Route: 065
  6. PRAVACHOL [Concomitant]
     Route: 065
  7. LOPRESSOR [Concomitant]
     Route: 065
  8. ASPIRIN [Concomitant]
     Route: 065
  9. PAXIL [Concomitant]
     Route: 065
  10. PLENDIL [Concomitant]
     Route: 065
  11. TENORMIN [Concomitant]
     Route: 065
  12. SOMA [Concomitant]
     Route: 065
  13. TYLENOL W/ CODEINE NO. 3 [Concomitant]
     Route: 065
  14. VICODIN [Concomitant]
     Route: 065
  15. CELEBREX [Concomitant]
     Route: 065

REACTIONS (13)
  - ANGINA PECTORIS [None]
  - ARTHROPATHY [None]
  - CARDIAC ARREST [None]
  - CHEST PAIN [None]
  - DIZZINESS [None]
  - GASTRITIS [None]
  - GASTROOESOPHAGEAL REFLUX DISEASE [None]
  - HERNIA [None]
  - MYOCARDIAL INFARCTION [None]
  - PERIPHERAL VASCULAR DISORDER [None]
  - ROAD TRAFFIC ACCIDENT [None]
  - SYNCOPE [None]
  - THROMBOSIS [None]
